FAERS Safety Report 4627173-X (Version None)
Quarter: 2005Q1

REPORT INFORMATION
  Report Type: 
  Country: None (occurrence: None)
  Receive Date: 20050331
  Receipt Date: 20050325
  Transmission Date: 20050727
  Serious: Yes (Hospitalization)
  Sender: FDA-Public Use
  Company Number: Q05-008

PATIENT
  Sex: Male
  Weight: 81.1939 kg

DRUGS (9)
  1. QUADRAMET [Suspect]
     Indication: METASTASES TO BONE
     Dosage: 82 MCI X 1 IV
     Route: 042
     Dates: start: 20041223
  2. QUADRAMET [Suspect]
     Indication: PROSTATE CANCER METASTATIC
     Dosage: 82 MCI X 1 IV
     Route: 042
     Dates: start: 20041223
  3. DARVOCET [Concomitant]
  4. ZOLOFT [Concomitant]
  5. FLOMAX [Concomitant]
  6. DURAGESIC-100 [Concomitant]
  7. IV MORPHINE [Concomitant]
  8. OXYCODONE HCL [Concomitant]
  9. 4 UNITS OF PRBCS [Concomitant]

REACTIONS (8)
  - FALL [None]
  - GAIT DISTURBANCE [None]
  - HAEMOGLOBIN DECREASED [None]
  - METASTASES TO LIVER [None]
  - PAIN [None]
  - PROSTATIC SPECIFIC ANTIGEN INCREASED [None]
  - REFUSAL OF TREATMENT BY PATIENT [None]
  - X-RAY OF PELVIS AND HIP ABNORMAL [None]
